FAERS Safety Report 8340411-5 (Version None)
Quarter: 2012Q2

REPORT INFORMATION
  Report Type: 
  Country: None (occurrence: None)
  Receive Date: 20120507
  Receipt Date: 20120507
  Transmission Date: 20120825
  Serious: Yes (Other)
  Sender: FDA-Public Use
  Company Number: None

PATIENT
  Age: 45 Year
  Sex: Male
  Weight: 90.718 kg

DRUGS (2)
  1. SERTRALINE HYDROCHLORIDE [Suspect]
     Indication: DEPRESSION
     Dosage: |DOSAGETEXT: 50.0 MG||STRENGTH: 50MG||FREQ: ONCE DAILY||ROUTE: ORAL|
     Route: 048
     Dates: start: 20120315, end: 20120430
  2. SERTRALINE HYDROCHLORIDE [Suspect]
     Indication: ANXIETY
     Dosage: |DOSAGETEXT: 50.0 MG||STRENGTH: 50MG||FREQ: ONCE DAILY||ROUTE: ORAL|
     Route: 048
     Dates: start: 20120315, end: 20120430

REACTIONS (16)
  - SOMNOLENCE [None]
  - ACTIVITIES OF DAILY LIVING IMPAIRED [None]
  - TIC [None]
  - PRODUCT SUBSTITUTION ISSUE [None]
  - COGNITIVE DISORDER [None]
  - SUICIDAL IDEATION [None]
  - DRY MOUTH [None]
  - MALE ORGASMIC DISORDER [None]
  - PRODUCT QUALITY ISSUE [None]
  - FATIGUE [None]
  - AGITATION [None]
  - ANXIETY [None]
  - STRABISMUS [None]
  - MUSCLE TIGHTNESS [None]
  - DEPRESSION [None]
  - MOVEMENT DISORDER [None]
